FAERS Safety Report 9363647 (Version 1)
Quarter: 2013Q2

REPORT INFORMATION
  Report Type: Spontaneous
  Country: US (occurrence: US)
  Receive Date: 20130624
  Receipt Date: 20130624
  Transmission Date: 20140414
  Serious: Yes (Other)
  Sender: FDA-Public Use
  Company Number: US-MYLANLABS-2013S1012851

PATIENT
  Age: 28 Year
  Sex: Male

DRUGS (4)
  1. ALPRAZOLAM [Suspect]
     Indication: OVERDOSE
     Route: 065
  2. DIAMORPHINE [Suspect]
     Indication: OVERDOSE
     Route: 065
  3. VALPROIC ACID [Concomitant]
     Route: 065
  4. ESCITALOPRAM [Concomitant]
     Dosage: 10MG DAILY
     Route: 065

REACTIONS (5)
  - Brain injury [Recovering/Resolving]
  - Central nervous system lesion [Recovering/Resolving]
  - Chorea [Recovering/Resolving]
  - Dystonia [Recovering/Resolving]
  - Overdose [Recovering/Resolving]
